FAERS Safety Report 16378679 (Version 1)
Quarter: 2019Q2

REPORT INFORMATION
  Report Type: Spontaneous
  Country: JP (occurrence: JP)
  Receive Date: 20190531
  Receipt Date: 20190531
  Transmission Date: 20190711
  Serious: Yes (Life-Threatening, Hospitalization)
  Sender: FDA-Public Use
  Company Number: JP-BAYER-2014-037421

PATIENT
  Age: 75 Year
  Sex: Male
  Weight: 74.83 kg

DRUGS (8)
  1. ARTIST [Concomitant]
     Active Substance: CARVEDILOL
     Dosage: DAILY DOSE 10 MG
     Route: 048
  2. AMOBAN [Concomitant]
     Active Substance: ZOPICLONE
     Dosage: DAILY DOSE 7.5 MG
     Route: 048
  3. NEXAVAR [Suspect]
     Active Substance: SORAFENIB
     Indication: METASTASES TO LUNG
  4. METHYCOBAL [Concomitant]
     Active Substance: METHYLCOBALAMIN
     Dosage: DAILY DOSE 1500 ?G
     Route: 048
  5. GASTER [Concomitant]
     Active Substance: FAMOTIDINE
     Dosage: DAILY DOSE 40 MG
     Route: 048
  6. SHAKUYAKUKANZOTO [Concomitant]
     Active Substance: HERBALS
     Dosage: DAILY DOSE 2.5 G
     Route: 048
  7. NEXAVAR [Suspect]
     Active Substance: SORAFENIB
     Indication: HEPATOCELLULAR CARCINOMA
     Dosage: 400 MG, BID
     Route: 048
     Dates: start: 20140305, end: 20140307
  8. CONIEL [Concomitant]
     Active Substance: BENIDIPINE HYDROCHLORIDE
     Dosage: DAILY DOSE 4 MG
     Route: 048

REACTIONS (2)
  - Loss of consciousness [Recovered/Resolved]
  - Cerebral haemorrhage [Recovered/Resolved]

NARRATIVE: CASE EVENT DATE: 20140308
